FAERS Safety Report 23830488 (Version 3)
Quarter: 2024Q2

REPORT INFORMATION
  Report Type: Spontaneous
  Country: US (occurrence: US)
  Receive Date: 20240508
  Receipt Date: 20240605
  Transmission Date: 20240716
  Serious: Yes (Other)
  Sender: FDA-Public Use
  Company Number: US-BAYER-2024A065152

PATIENT
  Age: 84 Year
  Sex: Female

DRUGS (1)
  1. KERENDIA [Suspect]
     Active Substance: FINERENONE
     Dosage: UNK
     Dates: start: 20240331, end: 2024

REACTIONS (2)
  - Blood potassium abnormal [None]
  - Hyperkalaemia [None]

NARRATIVE: CASE EVENT DATE: 20240101
